FAERS Safety Report 7941217-9 (Version None)
Quarter: 2011Q4

REPORT INFORMATION
  Report Type: 
  Country: None (occurrence: None)
  Receive Date: 20111128
  Receipt Date: 20111122
  Transmission Date: 20120403
  Serious: Yes (Hospitalization, Other)
  Sender: FDA-Public Use
  Company Number: JP-PFIZER INC-2011275122

PATIENT
  Age: 33 Year
  Sex: Female
  Weight: 38 kg

DRUGS (3)
  1. LYRICA [Suspect]
     Indication: HYPOAESTHESIA
     Dosage: 75 MG/DAY
     Route: 048
     Dates: start: 20111028, end: 20111029
  2. PRIMPERAN TAB [Suspect]
     Indication: INTRACRANIAL HYPOTENSION
     Dosage: 10 MG/DAY
     Route: 048
  3. MOBIC [Suspect]
     Indication: INTRACRANIAL HYPOTENSION
     Dosage: 10 MG/DAY
     Route: 048

REACTIONS (1)
  - SEPSIS [None]
